FAERS Safety Report 18578568 (Version 1)
Quarter: 2020Q4

REPORT INFORMATION
  Report Type: Spontaneous
  Country: US (occurrence: US)
  Receive Date: 20201204
  Receipt Date: 20201204
  Transmission Date: 20210114
  Serious: No
  Sender: FDA-Public Use
  Company Number: US-MSNLABS-2020MSNSPO00413

PATIENT

DRUGS (3)
  1. FOLFOX REGIMEN [Suspect]
     Active Substance: FLUOROURACIL\LEUCOVORIN CALCIUM\OXALIPLATIN
     Indication: GASTRIC CANCER STAGE II
     Route: 042
  2. CAPECITABINE TABLETS 500 MG [Suspect]
     Active Substance: CAPECITABINE
     Indication: GASTRIC CANCER STAGE II
     Route: 065
     Dates: start: 20201004, end: 20201006
  3. FAMOTIDINE 20 MG [Concomitant]
     Active Substance: FAMOTIDINE
     Route: 065

REACTIONS (6)
  - Adverse drug reaction [Unknown]
  - Dysphagia [None]
  - Nausea [Not Recovered/Not Resolved]
  - Throat tightness [None]
  - Pain [None]
  - Abdominal pain upper [Not Recovered/Not Resolved]
